FAERS Safety Report 15422169 (Version 2)
Quarter: 2018Q3

REPORT INFORMATION
  Report Type: Spontaneous
  Country: NL (occurrence: NL)
  Receive Date: 20180924
  Receipt Date: 20180924
  Transmission Date: 20181010
  Serious: Yes (Other)
  Sender: FDA-Public Use
  Company Number: PHHY2018NL102335

PATIENT
  Age: 63 Year
  Sex: Female

DRUGS (20)
  1. CICLOSPORIN [Suspect]
     Active Substance: CYCLOSPORINE
     Indication: BLINDNESS
  2. INFLIXIMAB [Suspect]
     Active Substance: INFLIXIMAB
     Indication: TRISMUS
  3. INFLIXIMAB [Suspect]
     Active Substance: INFLIXIMAB
     Indication: EPILEPSY
  4. METHOTREXATE. [Suspect]
     Active Substance: METHOTREXATE
     Indication: BLINDNESS
  5. METHOTREXATE. [Suspect]
     Active Substance: METHOTREXATE
     Indication: IMMUNOGLOBULIN G4 RELATED DISEASE
     Dosage: UNK
     Route: 065
  6. CYCLOPHOSPHAMIDE. [Suspect]
     Active Substance: CYCLOPHOSPHAMIDE
     Indication: IMMUNOGLOBULIN G4 RELATED DISEASE
     Dosage: UNK
     Route: 065
  7. CYCLOPHOSPHAMIDE. [Suspect]
     Active Substance: CYCLOPHOSPHAMIDE
     Indication: TRISMUS
  8. CYCLOPHOSPHAMIDE. [Suspect]
     Active Substance: CYCLOPHOSPHAMIDE
     Indication: EPILEPSY
  9. PREDNISONE. [Suspect]
     Active Substance: PREDNISONE
     Indication: TRISMUS
  10. PREDNISONE. [Suspect]
     Active Substance: PREDNISONE
     Indication: IMMUNOGLOBULIN G4 RELATED DISEASE
     Dosage: UNK
     Route: 065
  11. CYCLOPHOSPHAMIDE. [Suspect]
     Active Substance: CYCLOPHOSPHAMIDE
     Indication: BLINDNESS
  12. CICLOSPORIN [Suspect]
     Active Substance: CYCLOSPORINE
     Indication: IMMUNOGLOBULIN G4 RELATED DISEASE
     Dosage: UNK
     Route: 065
  13. PREDNISONE. [Suspect]
     Active Substance: PREDNISONE
     Indication: BLINDNESS
  14. METHOTREXATE. [Suspect]
     Active Substance: METHOTREXATE
     Indication: TRISMUS
  15. CICLOSPORIN [Suspect]
     Active Substance: CYCLOSPORINE
     Indication: EPILEPSY
  16. PREDNISONE. [Suspect]
     Active Substance: PREDNISONE
     Indication: EPILEPSY
  17. METHOTREXATE. [Suspect]
     Active Substance: METHOTREXATE
     Indication: EPILEPSY
  18. INFLIXIMAB [Suspect]
     Active Substance: INFLIXIMAB
     Indication: IMMUNOGLOBULIN G4 RELATED DISEASE
     Dosage: UNK
     Route: 065
  19. CICLOSPORIN [Suspect]
     Active Substance: CYCLOSPORINE
     Indication: TRISMUS
  20. INFLIXIMAB [Suspect]
     Active Substance: INFLIXIMAB
     Indication: BLINDNESS

REACTIONS (5)
  - Diabetes mellitus [Unknown]
  - Immunoglobulin G4 related disease [Unknown]
  - Disease recurrence [Unknown]
  - Treatment failure [Unknown]
  - Product use in unapproved indication [Unknown]
